FAERS Safety Report 7209228-9 (Version None)
Quarter: 2011Q1

REPORT INFORMATION
  Report Type: 
  Country: None (occurrence: None)
  Receive Date: 20110104
  Receipt Date: 20101229
  Transmission Date: 20110831
  Serious: Yes (Hospitalization, Other)
  Sender: FDA-Public Use
  Company Number: A0857771A

PATIENT
  Age: 52 Year
  Sex: Female

DRUGS (2)
  1. PROMACTA [Suspect]
     Indication: IDIOPATHIC THROMBOCYTOPENIC PURPURA
     Dosage: 50MG PER DAY
     Route: 048
     Dates: start: 20091101, end: 20100401
  2. RITUXIMAB [Concomitant]
     Indication: IDIOPATHIC THROMBOCYTOPENIC PURPURA

REACTIONS (5)
  - HEPATIC FUNCTION ABNORMAL [None]
  - CHOLECYSTITIS [None]
  - PANCREATITIS [None]
  - LIVER ABSCESS [None]
  - PROCEDURAL COMPLICATION [None]
